FAERS Safety Report 8571763-9 (Version None)
Quarter: 2012Q3

REPORT INFORMATION
  Report Type: 
  Country: None (occurrence: None)
  Receive Date: 20120806
  Receipt Date: 20120803
  Transmission Date: 20120928
  Serious: Yes (Other)
  Sender: FDA-Public Use
  Company Number: PHHY2012AU066866

PATIENT
  Sex: Female

DRUGS (4)
  1. PALIPERIDONE [Concomitant]
     Dosage: UNK
  2. VALPROATE SODIUM [Concomitant]
     Dosage: UNK
  3. OLANZAPINE [Concomitant]
     Dosage: UNK
  4. CLOZARIL [Suspect]
     Dosage: UNK
     Dates: start: 20091027, end: 20110709

REACTIONS (11)
  - SCHIZOAFFECTIVE DISORDER [None]
  - VIRAL INFECTION [None]
  - WHITE BLOOD CELL COUNT DECREASED [None]
  - DELUSION [None]
  - IRRITABILITY [None]
  - AGGRESSION [None]
  - MENTAL DISORDER [None]
  - NASOPHARYNGITIS [None]
  - NEUTROPENIA [None]
  - THINKING ABNORMAL [None]
  - MALAISE [None]
